FAERS Safety Report 8118540-0 (Version None)
Quarter: 2012Q1

REPORT INFORMATION
  Report Type: 
  Country: None (occurrence: None)
  Receive Date: 20120207
  Receipt Date: 20120202
  Transmission Date: 20120608
  Serious: Yes (Hospitalization, Other)
  Sender: FDA-Public Use
  Company Number: JP-ABBOTT-10P-087-0647832-00

PATIENT
  Sex: Male
  Weight: 54.6 kg

DRUGS (16)
  1. METHOTREXATE [Suspect]
     Indication: RHEUMATOID ARTHRITIS
     Dosage: 12 MG/W
     Route: 048
     Dates: start: 20030101
  2. METHOTREXATE [Suspect]
     Route: 048
     Dates: start: 20100405
  3. MIZORIBINE [Concomitant]
     Indication: RHEUMATOID ARTHRITIS
     Route: 048
     Dates: start: 20080101
  4. PREDNISOLONE [Concomitant]
     Indication: RHEUMATOID ARTHRITIS
     Route: 048
     Dates: start: 20030101
  5. PREDNISOLONE [Concomitant]
     Dates: start: 20100405
  6. MIZORIBINE [Concomitant]
     Route: 048
     Dates: start: 20100405
  7. ALENDRONATE SODIUM [Concomitant]
     Indication: PROPHYLAXIS
     Route: 048
     Dates: start: 20100405
  8. VITAMIN B COMPLEX CAP [Concomitant]
     Indication: VITAMIN SUPPLEMENTATION
     Route: 048
     Dates: start: 20100510
  9. METHOTREXATE [Suspect]
     Dosage: 13.5MG WEEK
  10. REBAMIPIDE [Concomitant]
     Indication: PROPHYLAXIS
     Route: 048
     Dates: start: 20100405
  11. ISONIAZID [Concomitant]
     Indication: PROPHYLAXIS
     Route: 048
     Dates: start: 20100510
  12. HUMIRA [Suspect]
     Indication: RHEUMATOID ARTHRITIS
     Route: 058
     Dates: start: 20100510, end: 20100629
  13. CELECOXIB [Concomitant]
     Dates: start: 20100405
  14. FOLIC ACID [Concomitant]
     Indication: RHEUMATOID ARTHRITIS
     Route: 048
     Dates: start: 20100405
  15. CHINESE HERBAL MEDICINE [Concomitant]
     Indication: CONSTIPATION
     Route: 048
     Dates: start: 20100510
  16. CELECOXIB [Concomitant]
     Indication: RHEUMATOID ARTHRITIS
     Dates: start: 20090101

REACTIONS (10)
  - ACTIVITIES OF DAILY LIVING IMPAIRED [None]
  - SHOCK [None]
  - OSTEOMYELITIS [None]
  - LYMPHOMA [None]
  - CHOLECYSTITIS ACUTE [None]
  - SMALL INTESTINAL PERFORATION [None]
  - DECUBITUS ULCER [None]
  - PYREXIA [None]
  - LYMPHADENOPATHY [None]
  - RHEUMATOID ARTHRITIS [None]
